FAERS Safety Report 8967939 (Version 1)
Quarter: 2012Q4

REPORT INFORMATION
  Report Type: 
  Country: US (occurrence: US)
  Receive Date: 20121218
  Receipt Date: 20121218
  Transmission Date: 20130627
  Serious: No
  Sender: FDA-Public Use
  Company Number: US-GLAXOSMITHKLINE-A0991172A

PATIENT
  Age: 69 Year
  Sex: Female

DRUGS (5)
  1. COREG CR [Suspect]
     Indication: HYPERTENSION
     Dosage: 40MG Per day
     Route: 048
     Dates: start: 2011, end: 2011
  2. BENICAR [Suspect]
     Indication: HYPERTENSION
     Dosage: 40MG Per day
     Route: 048
     Dates: start: 20120801
  3. COREG CR [Suspect]
     Indication: HYPERTENSION
     Dosage: 20MG Per day
     Route: 048
     Dates: start: 20120815
  4. LEVOTHYROXINE [Concomitant]
  5. UNSPECIFIED MEDICATION [Concomitant]

REACTIONS (3)
  - Depression [Recovered/Resolved]
  - Dyspnoea [Unknown]
  - Dyspnoea [Unknown]
